FAERS Safety Report 25499000 (Version 2)
Quarter: 2025Q3

REPORT INFORMATION
  Report Type: Report from Study
  Country: US (occurrence: US)
  Receive Date: 20250701
  Receipt Date: 20250705
  Transmission Date: 20251021
  Serious: Yes (Other)
  Sender: ACADIA PHARMACEUTICALS
  Company Number: US-ACADIA PHARMACEUTICALS INC.-ACA-2025-PIM-007632

PATIENT
  Age: 78 Year
  Sex: Male

DRUGS (2)
  1. NUPLAZID [Suspect]
     Active Substance: PIMAVANSERIN TARTRATE
     Indication: Parkinson^s disease
     Route: 065
  2. SEROQUEL [Suspect]
     Active Substance: QUETIAPINE FUMARATE
     Indication: Product used for unknown indication
     Route: 065

REACTIONS (9)
  - Hallucination [Unknown]
  - Poor quality sleep [Unknown]
  - Delusion [Unknown]
  - Condition aggravated [Unknown]
  - Insomnia [Unknown]
  - Cognitive disorder [Unknown]
  - Malaise [Unknown]
  - Motor dysfunction [Unknown]
  - Confusional state [Unknown]
